FAERS Safety Report 7905408-5 (Version None)
Quarter: 2011Q4

REPORT INFORMATION
  Report Type: 
  Country: None (occurrence: None)
  Receive Date: 20111109
  Receipt Date: 20110429
  Transmission Date: 20120403
  Serious: No
  Sender: FDA-Public Use
  Company Number: US-BAYER-2011-037049

PATIENT
  Age: 47 Year
  Sex: Female

DRUGS (1)
  1. CLIMARA [Suspect]
     Dosage: 25 MCG/24HR, UNK
     Route: 062
     Dates: start: 20090101

REACTIONS (1)
  - APPLICATION SITE RASH [None]
